FAERS Safety Report 8759068 (Version 1)
Quarter: 2012Q4

REPORT INFORMATION
  Report Type: 
  Country: SG (occurrence: SG)
  Receive Date: 20120829
  Receipt Date: 20120829
  Transmission Date: 20130627
  Serious: Yes (Other)
  Sender: FDA-Public Use
  Company Number: SG-PAR PHARMACEUTICAL, INC-2012SCPR004578

PATIENT

DRUGS (2)
  1. CABERGOLINE [Suspect]
     Indication: PROLACTINOMA
     Dosage: 0.25 mg, twice a week
     Route: 065
  2. CABERGOLINE [Suspect]
     Dosage: 0.5 mg, twice a week
     Route: 065

REACTIONS (1)
  - Pituitary haemorrhage [Recovered/Resolved]
